FAERS Safety Report 8898324 (Version 1)
Quarter: 2012Q4

REPORT INFORMATION
  Report Type: 
  Country: US (occurrence: US)
  Receive Date: 20121108
  Receipt Date: 20121108
  Transmission Date: 20130627
  Serious: No
  Sender: FDA-Public Use
  Company Number: US-AMGEN-USASP2012034323

PATIENT
  Age: 60 Year
  Sex: Male

DRUGS (9)
  1. ENBREL [Suspect]
     Indication: PRODUCT USED FOR UNKNOWN INDICATION
     Dosage: 50 mg, qwk
     Route: 058
  2. JANUVIA [Concomitant]
     Dosage: 25 mg, UNK
  3. FUROSEMIDE [Concomitant]
     Dosage: 10 mg, UNK
  4. METHOTREXATE [Concomitant]
     Dosage: 2.5 mg, UNK
  5. LIPITOR [Concomitant]
     Dosage: 40 mg, UNK
  6. NIASPAN [Concomitant]
     Dosage: UNK
  7. FOLIC ACID [Concomitant]
     Dosage: 1 mg, UNK
  8. LEVOTHYROXIN [Concomitant]
     Dosage: 100 mug, UNK
  9. GLIPIZIDE ER [Concomitant]
     Dosage: 5 mg, UNK

REACTIONS (1)
  - Contusion [Unknown]
